FAERS Safety Report 9721561 (Version 3)
Quarter: 2014Q1

REPORT INFORMATION
  Report Type: Report from Study
  Country: AU (occurrence: AU)
  Receive Date: 20131130
  Receipt Date: 20140224
  Transmission Date: 20141002
  Serious: Yes (Other)
  Sender: FDA-Public Use
  Company Number: PHHY2013AU138288

PATIENT
  Age: 57 Year
  Sex: Female
  Weight: 74 kg

DRUGS (20)
  1. ACLASTA [Suspect]
     Indication: OSTEOPOROSIS
     Dosage: 5 MG, UNK
     Route: 042
     Dates: start: 20090709
  2. ACLASTA [Suspect]
     Dosage: 5 MG, UNK
     Route: 042
     Dates: start: 20100917
  3. ACLASTA [Suspect]
     Dosage: 5 MG, UNK
     Route: 042
     Dates: start: 20111013
  4. ACLASTA [Suspect]
     Dosage: 5 MG, UNK
     Route: 042
     Dates: start: 20120828
  5. FRUSEMIDE [Concomitant]
     Dosage: 40 MG, MORNING
     Route: 048
  6. TEMAZEPAM [Concomitant]
     Dosage: 10 MG, PRN
     Route: 048
  7. SOMAC [Concomitant]
     Dosage: 40 MG, QD
     Route: 048
  8. LYRICA [Concomitant]
     Dosage: 150 MG, BID
     Route: 048
  9. DITROPAN [Concomitant]
     Dosage: 2.5 MG, BID
     Route: 048
  10. DIABEX [Concomitant]
     Dosage: 100 MG, BID
     Route: 048
  11. CYMBALTA [Concomitant]
     Dosage: 30 MG, QD
     Route: 048
  12. CORTISONE ACETATE [Concomitant]
     Dosage: 37.5 MG, (25 MG MORNING AND 12.5 MG NOCTE)
     Route: 048
  13. LANTUS [Concomitant]
     Dosage: 38 U, QD
     Route: 058
  14. CHLORVESCENT [Concomitant]
     Dosage: 1 DF, BID
     Route: 048
  15. CALCITRIOL [Concomitant]
     Dosage: 2 DF, BID
     Route: 048
  16. ATENOLOL [Concomitant]
     Dosage: 50 MG, QD
     Route: 048
  17. NOVORAPID [Concomitant]
     Dosage: 14 U, TID
     Route: 058
  18. BETA BLOCKING AGENTS [Concomitant]
     Dosage: UNK UKN, UNK
  19. ORAL BLOOD GLUCOSE LOWERING DRUGS [Concomitant]
     Dosage: UNK UKN, UNK
  20. INSULIN [Concomitant]
     Dosage: UNK UKN, UNK

REACTIONS (6)
  - Type 2 diabetes mellitus [Unknown]
  - Tooth loss [Recovered/Resolved with Sequelae]
  - Infection [Unknown]
  - Tooth disorder [Unknown]
  - Glycosylated haemoglobin increased [Unknown]
  - Inappropriate schedule of drug administration [Unknown]
